FAERS Safety Report 9099098 (Version 1)
Quarter: 2013Q1

REPORT INFORMATION
  Report Type: Spontaneous
  Country: DE (occurrence: DE)
  Receive Date: 20130214
  Receipt Date: 20130214
  Transmission Date: 20140127
  Serious: Yes (Congenital Anomaly)
  Sender: FDA-Public Use
  Company Number: DE-JNJFOC-20130202479

PATIENT
  Sex: Male
  Weight: 3.95 kg

DRUGS (15)
  1. REMICADE [Suspect]
     Indication: FOETAL EXPOSURE DURING PREGNANCY
     Route: 064
     Dates: start: 20120412
  2. REMICADE [Suspect]
     Indication: FOETAL EXPOSURE DURING PREGNANCY
     Route: 064
     Dates: start: 20120731
  3. REMICADE [Suspect]
     Indication: FOETAL EXPOSURE DURING PREGNANCY
     Route: 064
     Dates: start: 20120214
  4. REMICADE [Suspect]
     Indication: FOETAL EXPOSURE DURING PREGNANCY
     Route: 064
     Dates: start: 20120605
  5. REMICADE [Suspect]
     Indication: FOETAL EXPOSURE DURING PREGNANCY
     Route: 064
     Dates: start: 20120926, end: 20120926
  6. AZATHIOPRINE [Suspect]
     Indication: FOETAL EXPOSURE DURING PREGNANCY
     Dosage: 3X50
     Route: 064
     Dates: start: 20120128, end: 20121106
  7. INSULIN [Suspect]
     Indication: FOETAL EXPOSURE DURING PREGNANCY
     Route: 064
  8. ACICLOVIR [Suspect]
     Indication: FOETAL EXPOSURE DURING PREGNANCY
     Dosage: 3X400
     Route: 064
     Dates: start: 20120210, end: 20120215
  9. CEFUROXIME [Suspect]
     Indication: FOETAL EXPOSURE DURING PREGNANCY
     Dosage: 2X500
     Route: 064
     Dates: start: 20121026, end: 20121106
  10. VITAMIN B [Concomitant]
     Indication: FOETAL EXPOSURE DURING PREGNANCY
     Route: 064
     Dates: start: 20120214
  11. VITAMIN B [Concomitant]
     Indication: FOETAL EXPOSURE DURING PREGNANCY
     Route: 064
     Dates: start: 20120412
  12. VITAMIN B [Concomitant]
     Indication: FOETAL EXPOSURE DURING PREGNANCY
     Route: 064
     Dates: start: 20120605
  13. VITAMIN B [Concomitant]
     Indication: FOETAL EXPOSURE DURING PREGNANCY
     Route: 064
     Dates: start: 20120731
  14. VITAMIN B [Concomitant]
     Indication: FOETAL EXPOSURE DURING PREGNANCY
     Route: 064
     Dates: start: 20120926, end: 20120926
  15. FOLIO FORTE [Concomitant]
     Indication: FOETAL EXPOSURE DURING PREGNANCY
     Route: 064
     Dates: start: 20120128, end: 20121106

REACTIONS (3)
  - Congenital megaureter [Unknown]
  - Renal disorder [Unknown]
  - Foetal distress syndrome [Unknown]
